FAERS Safety Report 9705882 (Version 1)
Quarter: 2013Q4

REPORT INFORMATION
  Report Type: Spontaneous
  Country: KR (occurrence: KR)
  Receive Date: 20131122
  Receipt Date: 20131122
  Transmission Date: 20140711
  Serious: Yes (Life-Threatening, Hospitalization, Other)
  Sender: FDA-Public Use
  Company Number: KR-WATSON-2013-20748

PATIENT
  Age: 67 Year
  Sex: Male

DRUGS (1)
  1. FENTANYL [Suspect]
     Indication: NECK PAIN
     Dosage: UNK, 2 PATCHES (10CM2)
     Route: 062

REACTIONS (4)
  - Respiratory depression [Unknown]
  - Coma [Not Recovered/Not Resolved]
  - Atrial fibrillation [Unknown]
  - Drug prescribing error [Unknown]
